FAERS Safety Report 25624297 (Version 3)
Quarter: 2025Q3

REPORT INFORMATION
  Report Type: Report from Study
  Country: US (occurrence: US)
  Receive Date: 20250730
  Receipt Date: 20250909
  Transmission Date: 20251021
  Serious: Yes (Other)
  Sender: MALLINCKRODT
  Company Number: US-MALLINCKRODT-MNK202504348

PATIENT
  Sex: Female

DRUGS (1)
  1. CORTICOTROPIN [Suspect]
     Active Substance: CORTICOTROPIN
     Indication: Sarcoidosis
     Route: 058

REACTIONS (10)
  - Hypertension [Not Recovered/Not Resolved]
  - Miliaria [Unknown]
  - Illness [Unknown]
  - Chromaturia [Unknown]
  - Urine odour abnormal [Unknown]
  - Skin irritation [Unknown]
  - Night sweats [Unknown]
  - Rash macular [Unknown]
  - Asthenia [Unknown]
  - Fluid retention [Unknown]
